FAERS Safety Report 8794687 (Version 1)
Quarter: 2012Q4

REPORT INFORMATION
  Report Type: Report from Study
  Country: HU (occurrence: HU)
  Receive Date: 20120917
  Receipt Date: 20120917
  Transmission Date: 20130627
  Serious: Yes (Hospitalization, Other)
  Sender: FDA-Public Use
  Company Number: HU-ROCHE-1124679

PATIENT
  Sex: Male

DRUGS (1)
  1. XELODA [Suspect]
     Indication: COLON CANCER
     Route: 048
     Dates: start: 20090528, end: 200908

REACTIONS (5)
  - Hernia [Unknown]
  - Pyrexia [Unknown]
  - Jaundice [Unknown]
  - Anaemia [Unknown]
  - Asthenia [Unknown]
